FAERS Safety Report 7903214-9 (Version None)
Quarter: 2011Q4

REPORT INFORMATION
  Report Type: 
  Country: None (occurrence: None)
  Receive Date: 20111107
  Receipt Date: 20111031
  Transmission Date: 20120403
  Serious: Yes (Hospitalization)
  Sender: FDA-Public Use
  Company Number: 2011SP025638

PATIENT
  Age: 42 Year
  Sex: Female
  Weight: 101.1521 kg

DRUGS (3)
  1. NUVARING [Suspect]
     Indication: CONTRACEPTION
     Dates: start: 20070101, end: 20080611
  2. WELLBUTRIN [Concomitant]
  3. PROZAC [Concomitant]

REACTIONS (4)
  - SLEEP DISORDER [None]
  - INSOMNIA [None]
  - PULMONARY EMBOLISM [None]
  - PAIN IN EXTREMITY [None]
